FAERS Safety Report 8209576-X (Version None)
Quarter: 2012Q1

REPORT INFORMATION
  Report Type: 
  Country: None (occurrence: None)
  Receive Date: 20120314
  Receipt Date: 20120313
  Transmission Date: 20120608
  Serious: No
  Sender: FDA-Public Use
  Company Number: US-PFIZER INC-2012066327

PATIENT
  Sex: Female
  Weight: 71.202 kg

DRUGS (1)
  1. CHANTIX [Suspect]
     Dosage: UNK

REACTIONS (3)
  - HYPERHIDROSIS [None]
  - TACHYPHRENIA [None]
  - INSOMNIA [None]
